FAERS Safety Report 5844188-4 (Version None)
Quarter: 2008Q3

REPORT INFORMATION
  Report Type: 
  Country: None (occurrence: None)
  Receive Date: 20080731
  Receipt Date: 20080429
  Transmission Date: 20090109
  Serious: No
  Sender: FDA-Public Use
  Company Number: US200804007462

PATIENT
  Sex: Female

DRUGS (3)
  1. BYETTA [Suspect]
     Dosage: 5 UG, SUBCUTANEOUS ; 10 UG, SUBCUTANEOUS
     Route: 058
     Dates: start: 20080201, end: 20080401
  2. BYETTA [Suspect]
     Dosage: 5 UG, SUBCUTANEOUS ; 10 UG, SUBCUTANEOUS
     Route: 058
     Dates: start: 20080401
  3. EXENATIDE PEN, DISPOSABLE DEVICE (EXENATIDE PEN)) PEN,DISPOSABLE [Concomitant]

REACTIONS (1)
  - RHEUMATOID ARTHRITIS [None]
